FAERS Safety Report 5257800-8 (Version None)
Quarter: 2007Q1

REPORT INFORMATION
  Report Type: 
  Country: None (occurrence: None)
  Receive Date: 20070307
  Receipt Date: 20070228
  Transmission Date: 20070707
  Serious: No
  Sender: FDA-Public Use
  Company Number: 2006UW08253

PATIENT
  Age: 43 Year
  Sex: Male
  Weight: 81.8 kg

DRUGS (7)
  1. SEROQUEL [Suspect]
     Indication: BIPOLAR DISORDER
     Route: 048
     Dates: start: 20040701, end: 20041008
  2. SEROQUEL [Suspect]
     Indication: DEPRESSION
     Route: 048
     Dates: start: 20040701, end: 20041008
  3. SEROQUEL [Suspect]
     Route: 048
     Dates: start: 20041008, end: 20060302
  4. SEROQUEL [Suspect]
     Route: 048
     Dates: start: 20041008, end: 20060302
  5. ZYPREXA [Concomitant]
     Dates: start: 19980601, end: 20030717
  6. LEXAPRO [Concomitant]
     Dates: start: 20050101, end: 20060101
  7. EFFEXOR [Concomitant]
     Dates: start: 20020101, end: 20040101

REACTIONS (1)
  - DIABETES MELLITUS [None]
